FAERS Safety Report 18212823 (Version 1)
Quarter: 2020Q3

REPORT INFORMATION
  Report Type: Report from Study
  Country: IL (occurrence: IL)
  Receive Date: 20200831
  Receipt Date: 20200831
  Transmission Date: 20201104
  Serious: Yes (Other)
  Sender: FDA-Public Use
  Company Number: IL-GLAXOSMITHKLINE-IL2020GSK092593

PATIENT
  Age: 73 Year
  Sex: Male
  Weight: 56 kg

DRUGS (1)
  1. BELANTAMAB MAFODOTIN. [Suspect]
     Active Substance: BELANTAMAB MAFODOTIN
     Indication: PLASMA CELL MYELOMA
     Dosage: 140 MG, CYC, EVERY 3 WEEKS (5 VIALS)
     Route: 042
     Dates: start: 20200324

REACTIONS (3)
  - Punctate keratitis [Recovering/Resolving]
  - Corneal epithelial microcysts [Recovering/Resolving]
  - Ulcerative keratitis [Recovering/Resolving]

NARRATIVE: CASE EVENT DATE: 20200421
